FAERS Safety Report 9440302 (Version 1)
Quarter: 2013Q3

REPORT INFORMATION
  Report Type: Spontaneous
  Country: GB (occurrence: GB)
  Receive Date: 20130805
  Receipt Date: 20130805
  Transmission Date: 20140515
  Serious: Yes (Other)
  Sender: FDA-Public Use
  Company Number: GB-ELI_LILLY_AND_COMPANY-GB201307008747

PATIENT
  Age: 57 Year
  Sex: Female

DRUGS (2)
  1. YENTREVE [Suspect]
     Indication: FIBROMYALGIA
     Dosage: 40 MG, BID
     Route: 048
     Dates: start: 201210
  2. EVOREL [Concomitant]
     Indication: HORMONE REPLACEMENT THERAPY
     Dosage: 1 DF, 2/W
     Route: 062
     Dates: start: 2000

REACTIONS (3)
  - Aphasia [Not Recovered/Not Resolved]
  - Memory impairment [Not Recovered/Not Resolved]
  - Off label use [Unknown]
